FAERS Safety Report 17257144 (Version 2)
Quarter: 2020Q1

REPORT INFORMATION
  Report Type: Report from Study
  Country: US (occurrence: US)
  Receive Date: 20200110
  Receipt Date: 20200116
  Transmission Date: 20200409
  Serious: Yes (Death, Hospitalization)
  Sender: FDA-Public Use
  Company Number: US-BAUSCH-BL-2020-000745

PATIENT
  Sex: Male

DRUGS (3)
  1. XIFAXAN [Suspect]
     Active Substance: RIFAXIMIN
     Dosage: USING WHILE IN THE HOSPITAL IN SEP/2019 AND COULD NOT TAKE AFTER DISCHARGED
     Route: 065
     Dates: start: 2019, end: 2019
  2. XIFAXAN [Suspect]
     Active Substance: RIFAXIMIN
     Indication: PRODUCT USE IN UNAPPROVED INDICATION
     Dosage: USING WHILE IN THE HOSPITAL IN JUN/2019 AND COULD NOT TAKE AFTER DISCHARGED
     Route: 065
     Dates: start: 2019, end: 2019
  3. XIFAXAN [Suspect]
     Active Substance: RIFAXIMIN
     Indication: ENCEPHALOPATHY
     Dosage: USING WHILE IN THE HOSPITAL IN JAN/2019 AND COULD NOT TAKE AFTER DISCHARGED
     Route: 065
     Dates: start: 201901, end: 2019

REACTIONS (8)
  - Hepatic failure [Fatal]
  - Insurance issue [Unknown]
  - Inability to afford medication [Unknown]
  - Product use in unapproved indication [Unknown]
  - Peritonitis [Fatal]
  - Ammonia increased [Unknown]
  - Renal failure [Fatal]
  - Therapy cessation [Unknown]

NARRATIVE: CASE EVENT DATE: 2019
